FAERS Safety Report 22805459 (Version 4)
Quarter: 2023Q4

REPORT INFORMATION
  Report Type: Report from Study
  Country: US (occurrence: US)
  Receive Date: 20230809
  Receipt Date: 20231213
  Transmission Date: 20240110
  Serious: Yes (Other)
  Sender: FDA-Public Use
  Company Number: US-ABBVIE-5359134

PATIENT
  Age: 70 Year
  Sex: Male
  Weight: 113 kg

DRUGS (4)
  1. IMBRUVICA [Suspect]
     Active Substance: IBRUTINIB
     Indication: Waldenstrom^s macroglobulinaemia
     Dosage: FORM STRENGTH: 420 MG
     Route: 048
     Dates: start: 202101
  2. IMBRUVICA [Suspect]
     Active Substance: IBRUTINIB
     Indication: Waldenstrom^s macroglobulinaemia
     Dosage: FORM STRENGTH: 420 MG?STOP DATE-2023
     Route: 048
     Dates: start: 20230228
  3. IMBRUVICA [Suspect]
     Active Substance: IBRUTINIB
     Indication: Waldenstrom^s macroglobulinaemia
     Dosage: FORM STRENGTH: 420 MG
     Route: 048
     Dates: start: 20230301
  4. INFLUENZA VIRUS VACCINE [Concomitant]
     Active Substance: INFLUENZA VIRUS VACCINE
     Indication: Product used for unknown indication

REACTIONS (16)
  - Spinal stenosis [Unknown]
  - Poor quality sleep [Unknown]
  - Neck mass [Unknown]
  - Increased tendency to bruise [Unknown]
  - Dyspepsia [Unknown]
  - Dyspepsia [Recovered/Resolved]
  - Gastrooesophageal reflux disease [Unknown]
  - Hypophagia [Unknown]
  - Unevaluable event [Unknown]
  - Weight increased [Unknown]
  - Poor quality sleep [Recovered/Resolved]
  - Peroneal nerve palsy [Unknown]
  - Sciatica [Unknown]
  - Drug eruption [Recovered/Resolved]
  - Gastrooesophageal reflux disease [Recovered/Resolved]
  - Dyspepsia [Recovered/Resolved]

NARRATIVE: CASE EVENT DATE: 20210101
